FAERS Safety Report 6152379-0 (Version None)
Quarter: 2009Q2

REPORT INFORMATION
  Report Type: 
  Country: None (occurrence: None)
  Receive Date: 20090409
  Receipt Date: 20090330
  Transmission Date: 20091009
  Serious: Yes (Death)
  Sender: FDA-Public Use
  Company Number: 2009AP001245

PATIENT
  Age: 58 Year
  Sex: Male

DRUGS (3)
  1. FLUOXETINE HYDROCHLORIDE [Suspect]
  2. AMITRIPTLINE HYDROCHLORIDE TAB [Suspect]
  3. ZYPREXA [Suspect]
     Dosage: 15 MG; BID

REACTIONS (8)
  - ACCIDENTAL DEATH [None]
  - ALCOHOL USE [None]
  - CONTUSION [None]
  - CORONARY ARTERY DISEASE [None]
  - DRUG TOXICITY [None]
  - FOREIGN BODY TRAUMA [None]
  - HEPATIC CIRRHOSIS [None]
  - RIB FRACTURE [None]
